FAERS Safety Report 7608289-2 (Version None)
Quarter: 2011Q3

REPORT INFORMATION
  Report Type: 
  Country: None (occurrence: None)
  Receive Date: 20110714
  Receipt Date: 20110711
  Transmission Date: 20111222
  Serious: Yes (Other)
  Sender: FDA-Public Use
  Company Number: US-PFIZER INC-2011156766

PATIENT
  Sex: Male
  Weight: 52.154 kg

DRUGS (5)
  1. PREVACID [Concomitant]
     Indication: GASTROOESOPHAGEAL REFLUX DISEASE
     Dosage: UNK
  2. PROZAC [Concomitant]
     Indication: ANXIETY
     Dosage: 40 MG, UNK
  3. TENEX [Concomitant]
     Indication: BIPOLAR DISORDER
     Dosage: 1 MG, UNK
  4. GEODON [Suspect]
     Indication: BIPOLAR DISORDER
     Dosage: 80 MG, 1X/DAY
     Route: 048
     Dates: start: 20110615
  5. ADDERALL XR 10 [Concomitant]
     Indication: ATTENTION DEFICIT/HYPERACTIVITY DISORDER
     Dosage: 30 MG, UNK

REACTIONS (3)
  - TREMOR [None]
  - INSOMNIA [None]
  - RESTLESS LEGS SYNDROME [None]
